FAERS Safety Report 5605289-9 (Version None)
Quarter: 2008Q1

REPORT INFORMATION
  Report Type: 
  Country: None (occurrence: None)
  Receive Date: 20080123
  Receipt Date: 20080123
  Transmission Date: 20080703
  Serious: No
  Sender: FDA-Public Use
  Company Number: None

PATIENT
  Age: 82 Year
  Sex: Female

DRUGS (2)
  1. VYTORIN [Suspect]
     Indication: HYPERCHOLESTEROLAEMIA
  2. HYDROXYZINE HCL [Concomitant]

REACTIONS (4)
  - DYSGRAPHIA [None]
  - MUSCULAR WEAKNESS [None]
  - RASH GENERALISED [None]
  - TREMOR [None]
